FAERS Safety Report 15834991 (Version 3)
Quarter: 2019Q4

REPORT INFORMATION
  Report Type: Spontaneous
  Country: US (occurrence: US)
  Receive Date: 20190116
  Receipt Date: 20191017
  Transmission Date: 20200122
  Serious: No
  Sender: FDA-Public Use
  Company Number: US-CHILTERN-US-2018-000244

PATIENT

DRUGS (1)
  1. RHOPRESSA [Suspect]
     Active Substance: NETARSUDIL MESYLATE
     Indication: CORNEAL OPERATION
     Dosage: UNK, UNK
     Route: 047

REACTIONS (2)
  - Off label use [Unknown]
  - Keratopathy [Unknown]
